FAERS Safety Report 7212531-X (Version None)
Quarter: 2010Q4

REPORT INFORMATION
  Report Type: 
  Country: None (occurrence: None)
  Receive Date: 20101229
  Receipt Date: 20101214
  Transmission Date: 20110411
  Serious: Yes (Death, Other)
  Sender: FDA-Public Use
  Company Number: 012455

PATIENT
  Age: 61 Year

DRUGS (2)
  1. BUSULFEX [Suspect]
     Indication: STEM CELL TRANSPLANT
  2. FLUDARBINE (FLUDARABINE) [Concomitant]

REACTIONS (3)
  - RECURRENT CANCER [None]
  - REFRACTORY ANAEMIA [None]
  - THROMBOTIC MICROANGIOPATHY [None]
